FAERS Safety Report 5712816-X (Version None)
Quarter: 2008Q2

REPORT INFORMATION
  Report Type: 
  Country: None (occurrence: None)
  Receive Date: 20080421
  Receipt Date: 20080421
  Transmission Date: 20081010
  Serious: Yes (Hospitalization)
  Sender: FDA-Public Use
  Company Number: None

PATIENT

DRUGS (1)
  1. MITOMYCIN [Suspect]
     Indication: BLADDER CANCER
     Dosage: IV DRIP
     Route: 041

REACTIONS (3)
  - DYSURIA [None]
  - MICTURITION URGENCY [None]
  - POLLAKIURIA [None]
